FAERS Safety Report 11286770 (Version 1)
Quarter: 2015Q3

REPORT INFORMATION
  Report Type: Spontaneous
  Country: RS (occurrence: RS)
  Receive Date: 20150721
  Receipt Date: 20150721
  Transmission Date: 20151125
  Serious: Yes (Hospitalization, Other)
  Sender: FDA-Public Use
  Company Number: RS-ALEMBIC PHARMACEUTICALS LIMITED-2015SCAL000392

PATIENT
  Age: 37 Year
  Sex: Male

DRUGS (5)
  1. DIAZEPAM. [Suspect]
     Active Substance: DIAZEPAM
     Indication: PRODUCT USED FOR UNKNOWN INDICATION
     Dosage: 30 MG, QD
  2. GENTAMICIN. [Suspect]
     Active Substance: GENTAMICIN
     Indication: CELLULITIS
     Dosage: UNK
  3. METHADONE [Suspect]
     Active Substance: METHADONE HYDROCHLORIDE
     Indication: DRUG WITHDRAWAL MAINTENANCE THERAPY
     Dosage: 60 MG, QD
     Route: 048
  4. CEFTRIAXONE. [Suspect]
     Active Substance: CEFTRIAXONE
     Indication: CELLULITIS
     Dosage: UNK
  5. METRONIDAZOLE. [Suspect]
     Active Substance: METRONIDAZOLE
     Indication: CELLULITIS
     Dosage: UNK

REACTIONS (14)
  - Torsade de pointes [Recovering/Resolving]
  - Pulse absent [Unknown]
  - Drug interaction [Unknown]
  - Ventricular fibrillation [Recovering/Resolving]
  - Loss of consciousness [Unknown]
  - Hypotension [Unknown]
  - Ventricular extrasystoles [Recovering/Resolving]
  - Blood urea increased [Recovered/Resolved]
  - Respiratory arrest [Unknown]
  - Alanine aminotransferase increased [Recovered/Resolved]
  - Aspartate aminotransferase increased [Recovered/Resolved]
  - Respiratory failure [Unknown]
  - Electrocardiogram QT prolonged [Recovering/Resolving]
  - Coma [Unknown]
